FAERS Safety Report 25378542 (Version 2)
Quarter: 2025Q3

REPORT INFORMATION
  Report Type: Spontaneous
  Country: US (occurrence: US)
  Receive Date: 20250530
  Receipt Date: 20250724
  Transmission Date: 20251020
  Serious: No
  Sender: ROCHE
  Company Number: US-ROCHE-10000290888

PATIENT
  Age: 53 Year
  Sex: Female

DRUGS (1)
  1. XOLAIR [Suspect]
     Active Substance: OMALIZUMAB
     Indication: Product use in unapproved indication
     Route: 065

REACTIONS (5)
  - Product packaging issue [Unknown]
  - Device physical property issue [Unknown]
  - Product dose omission issue [Unknown]
  - Off label use [Unknown]
  - No adverse event [Unknown]
